FAERS Safety Report 17016373 (Version 10)
Quarter: 2020Q3

REPORT INFORMATION
  Report Type: Spontaneous
  Country: DE (occurrence: DE)
  Receive Date: 20191111
  Receipt Date: 20200706
  Transmission Date: 20201102
  Serious: Yes (Hospitalization, Other)
  Sender: FDA-Public Use
  Company Number: DE-JNJFOC-20191102187

PATIENT
  Age: 59 Year
  Sex: Male
  Weight: 70 kg

DRUGS (7)
  1. POMALIDOMIDE [Suspect]
     Active Substance: POMALIDOMIDE
     Indication: PLASMA CELL MYELOMA
     Route: 048
     Dates: start: 20141001, end: 20180615
  2. DARZALEX [Suspect]
     Active Substance: DARATUMUMAB
     Indication: PLASMA CELL MYELOMA
     Route: 065
     Dates: start: 20170501, end: 20190525
  3. VELCADE [Suspect]
     Active Substance: BORTEZOMIB
     Indication: PLASMA CELL MYELOMA
     Route: 065
     Dates: start: 20130204, end: 20190308
  4. DEXAMETHASONE. [Suspect]
     Active Substance: DEXAMETHASONE
     Indication: PLASMA CELL MYELOMA
     Route: 065
     Dates: start: 20080801, end: 20190528
  5. CYCLOPHOSPHAMIDE. [Suspect]
     Active Substance: CYCLOPHOSPHAMIDE
     Indication: PLASMA CELL MYELOMA
     Route: 065
     Dates: start: 20130204, end: 20180601
  6. CARFILZOMIB [Suspect]
     Active Substance: CARFILZOMIB
     Indication: PLASMA CELL MYELOMA
     Route: 042
  7. ELOTUZUMAB. [Suspect]
     Active Substance: ELOTUZUMAB
     Indication: PLASMA CELL MYELOMA
     Dosage: 10 MILLIGRAM/KILOGRAM, 3X PER MONTH
     Route: 065
     Dates: start: 20190131, end: 20190521

REACTIONS (8)
  - Human polyomavirus infection [Recovered/Resolved with Sequelae]
  - Anogenital warts [Unknown]
  - Metastasis [Unknown]
  - Immune reconstitution inflammatory syndrome [Recovered/Resolved with Sequelae]
  - Respirovirus test positive [Unknown]
  - Papilloma viral infection [Unknown]
  - Progressive multifocal leukoencephalopathy [Recovered/Resolved with Sequelae]
  - Cytomegalovirus infection reactivation [Unknown]
